FAERS Safety Report 19843183 (Version 1)
Quarter: 2021Q3

REPORT INFORMATION
  Report Type: Spontaneous
  Country: US (occurrence: US)
  Receive Date: 20210916
  Receipt Date: 20210916
  Transmission Date: 20211014
  Serious: Yes (Death, Other)
  Sender: FDA-Public Use
  Company Number: US-PERRIGO-21US020463

PATIENT
  Age: 55 Year
  Sex: Female

DRUGS (1)
  1. RANITIDINE HYDROCHLORIDE (156) [Suspect]
     Active Substance: RANITIDINE HYDROCHLORIDE
     Indication: DYSPEPSIA
     Dosage: DOSE FREQUENCY: DAILY
     Route: 048
     Dates: start: 200201, end: 201903

REACTIONS (7)
  - Pancreatic carcinoma [Fatal]
  - Gastrointestinal carcinoma [Fatal]
  - Gastric cancer [Fatal]
  - Renal cancer [Fatal]
  - Hepatic cancer [Fatal]
  - Bladder cancer [Fatal]
  - Small intestine carcinoma [Fatal]

NARRATIVE: CASE EVENT DATE: 20191001
